FAERS Safety Report 21863426 (Version 4)
Quarter: 2023Q2

REPORT INFORMATION
  Report Type: Spontaneous
  Country: US (occurrence: DE)
  Receive Date: 20230115
  Receipt Date: 20230412
  Transmission Date: 20230722
  Serious: Yes (Hospitalization, Other)
  Sender: FDA-Public Use
  Company Number: DE-BRISTOL-MYERS SQUIBB COMPANY-2022-140264

PATIENT
  Age: 85 Year
  Sex: Male
  Weight: 81.9 kg

DRUGS (9)
  1. FLUOROURACIL [Suspect]
     Active Substance: FLUOROURACIL
     Indication: Oesophageal adenocarcinoma
     Dosage: 3939 MILLIGRAM, 2 WEEK
     Route: 042
     Dates: start: 20221107, end: 20230106
  2. OXALIPLATIN [Suspect]
     Active Substance: OXALIPLATIN
     Indication: Oesophageal adenocarcinoma
     Dosage: 129 MILLIGRAM, 2 WEEK
     Route: 042
     Dates: start: 20221107
  3. OPDIVO [Suspect]
     Active Substance: NIVOLUMAB
     Indication: Oesophageal adenocarcinoma
     Dosage: 240 MILLIGRAM, 2 WEEK
     Route: 042
     Dates: start: 20221107, end: 20221222
  4. OPDIVO [Suspect]
     Active Substance: NIVOLUMAB
     Dosage: 240 MILLIGRAM, 2 WEEK
     Route: 042
     Dates: start: 20221107, end: 20221227
  5. NEBIVOLOL [Concomitant]
     Active Substance: NEBIVOLOL
     Indication: Product used for unknown indication
     Dosage: 5 MILLIGRAM, ONCE A DAY
     Route: 048
     Dates: start: 20221014
  6. PANTOPRAZOLE SODIUM [Concomitant]
     Active Substance: PANTOPRAZOLE SODIUM
     Indication: Prophylaxis
     Dosage: 40 MILLIGRAM, ONCE A DAY
     Route: 048
     Dates: start: 20221014
  7. SIMVASTATIN [Concomitant]
     Active Substance: SIMVASTATIN
     Indication: Prophylaxis
     Dosage: 20 MILLIGRAM, ONCE A DAY
     Route: 048
     Dates: start: 20221013
  8. HYDROCHLOROTHIAZIDE\VALSARTAN [Concomitant]
     Active Substance: HYDROCHLOROTHIAZIDE\VALSARTAN
     Indication: Prophylaxis
     Dosage: 160 MILLIGRAM, ONCE A DAY
     Route: 048
     Dates: start: 20221014
  9. XARELTO [Concomitant]
     Active Substance: RIVAROXABAN
     Indication: Prophylaxis
     Dosage: 20 MILLIGRAM, ONCE A DAY
     Route: 048
     Dates: start: 20221014

REACTIONS (1)
  - Pneumonia [Recovered/Resolved]

NARRATIVE: CASE EVENT DATE: 20221118
